FAERS Safety Report 12291086 (Version 3)
Quarter: 2016Q2

REPORT INFORMATION
  Report Type: Report from Study
  Country: BR (occurrence: BR)
  Receive Date: 20160421
  Receipt Date: 20160516
  Transmission Date: 20160815
  Serious: Yes (Other)
  Sender: FDA-Public Use
  Company Number: BR-JNJFOC-20160418088

PATIENT
  Sex: Female

DRUGS (7)
  1. SIMPONI [Suspect]
     Active Substance: GOLIMUMAB
     Indication: RHEUMATOID ARTHRITIS
     Route: 058
     Dates: start: 20151121
  2. SIMPONI [Suspect]
     Active Substance: GOLIMUMAB
     Indication: RHEUMATOID ARTHRITIS
     Route: 058
     Dates: start: 20160321
  3. LUVOX [Concomitant]
     Active Substance: FLUVOXAMINE MALEATE
     Route: 065
  4. ALPRAZOLAM. [Concomitant]
     Active Substance: ALPRAZOLAM
     Route: 065
  5. RAZAPINA [Concomitant]
     Active Substance: MIRTAZAPINE
     Route: 065
  6. METHOTREXATE [Concomitant]
     Active Substance: METHOTREXATE
     Route: 065
  7. METHYLCOBALAMIN. [Concomitant]
     Active Substance: METHYLCOBALAMIN
     Route: 065

REACTIONS (2)
  - Flavivirus infection [Recovering/Resolving]
  - Influenza [Recovering/Resolving]
